FAERS Safety Report 9768820 (Version 1)
Quarter: 2013Q4

REPORT INFORMATION
  Report Type: Spontaneous
  Country: PT (occurrence: PT)
  Receive Date: 20131218
  Receipt Date: 20131218
  Transmission Date: 20140711
  Serious: Yes (Hospitalization)
  Sender: FDA-Public Use
  Company Number: PHHY2013PT144962

PATIENT
  Age: 52 Year
  Sex: Female

DRUGS (1)
  1. LAMOTRIGINE [Suspect]
     Dosage: 100 MG, UNK

REACTIONS (2)
  - Brugada syndrome [Recovered/Resolved]
  - Chest pain [Recovered/Resolved]
